FAERS Safety Report 8965206 (Version 1)
Quarter: 2012Q4

REPORT INFORMATION
  Report Type: 
  Country: US (occurrence: US)
  Receive Date: 20121213
  Receipt Date: 20121213
  Transmission Date: 20130627
  Serious: No
  Sender: FDA-Public Use
  Company Number: US-BRISTOL-MYERS SQUIBB COMPANY-16602583

PATIENT
  Age: 57 Year
  Sex: Female
  Weight: 73 kg

DRUGS (1)
  1. IXEMPRA [Suspect]
     Indication: BREAST CANCER METASTATIC
     Dosage: No of treatments-2.2nd treatment-23Apr12.
     Dates: start: 20120402

REACTIONS (6)
  - Neuralgia [Unknown]
  - Bone pain [Unknown]
  - Myalgia [Unknown]
  - White blood cell count decreased [Recovering/Resolving]
  - Constipation [Unknown]
  - Weight decreased [Unknown]
